FAERS Safety Report 20972038 (Version 1)
Quarter: 2022Q2

REPORT INFORMATION
  Report Type: Spontaneous
  Country: US (occurrence: US)
  Receive Date: 20220616
  Receipt Date: 20220616
  Transmission Date: 20220721
  Serious: No
  Sender: FDA-Public Use
  Company Number: US-SA-SAC20220613000493

PATIENT
  Sex: Female

DRUGS (27)
  1. DUPIXENT [Suspect]
     Active Substance: DUPILUMAB
     Indication: Dermatitis atopic
     Dosage: 300 MG, QOW
     Route: 058
     Dates: start: 20220128, end: 2022
  2. FLONASE ALLERGY RELIEF [Concomitant]
     Active Substance: FLUTICASONE PROPIONATE
  3. FISH OIL [Concomitant]
     Active Substance: FISH OIL
  4. .ALPHA.-TOCOPHEROL [Concomitant]
     Active Substance: .ALPHA.-TOCOPHEROL
  5. CALCIUM\CHOLECALCIFEROL [Concomitant]
     Active Substance: CALCIUM\CHOLECALCIFEROL
     Dosage: 600MG-12.5 TABLET ER
  6. ALBUTEROL SULFATE [Concomitant]
     Active Substance: ALBUTEROL SULFATE
  7. PROAIR HFA [Concomitant]
     Active Substance: ALBUTEROL SULFATE
     Dosage: 90 MCG HFA AER AD
  8. ZINC [Concomitant]
     Active Substance: ZINC
     Dosage: UNK
  9. BENZONATATE [Concomitant]
     Active Substance: BENZONATATE
  10. VITAMIN B12 [Concomitant]
     Active Substance: CYANOCOBALAMIN
     Dosage: 1000 MCG
  11. ASPIRIN [Concomitant]
     Active Substance: ASPIRIN
     Dosage: ASPIRIN EC 81 MG TABLET DR,
  12. HYDROXYZINE HYDROCHLORIDE [Concomitant]
     Active Substance: HYDROXYZINE HYDROCHLORIDE
  13. LOSARTAN POTASSIUM [Concomitant]
     Active Substance: LOSARTAN POTASSIUM
  14. POTASSIUM CHLORIDE [Concomitant]
     Active Substance: POTASSIUM CHLORIDE
  15. SIMVASTATIN [Concomitant]
     Active Substance: SIMVASTATIN
  16. TRAMADOL HCL [Concomitant]
     Active Substance: TRAMADOL HYDROCHLORIDE
  17. PANTOPRAZOLE SODIUM [Concomitant]
     Active Substance: PANTOPRAZOLE SODIUM
  18. DULOXETINE HYDROCHLORIDE [Concomitant]
     Active Substance: DULOXETINE HYDROCHLORIDE
  19. KETOCONAZOLE [Concomitant]
     Active Substance: KETOCONAZOLE
  20. RECLAST [Concomitant]
     Active Substance: ZOLEDRONIC ACID
     Dosage: 5 MG/100ML PGGYBK BTL
  21. ALLEGRA D-12 HOUR [Concomitant]
     Active Substance: FEXOFENADINE HYDROCHLORIDE\PSEUDOEPHEDRINE HYDROCHLORIDE
  22. GABAPENTIN [Concomitant]
     Active Substance: GABAPENTIN
  23. SINGULAIR [Concomitant]
     Active Substance: MONTELUKAST SODIUM
  24. PREDNISONE [Concomitant]
     Active Substance: PREDNISONE
  25. IMURAN [Concomitant]
     Active Substance: AZATHIOPRINE
  26. HYDROXYZINE HYDROCHLORIDE [Concomitant]
     Active Substance: HYDROXYZINE HYDROCHLORIDE
  27. VITAMIN B6 [Concomitant]
     Active Substance: PYRIDOXINE HYDROCHLORIDE

REACTIONS (4)
  - Eczema [Unknown]
  - Herpes zoster [Unknown]
  - Peripheral swelling [Unknown]
  - Joint swelling [Unknown]

NARRATIVE: CASE EVENT DATE: 20220101
